FAERS Safety Report 12100214 (Version 1)
Quarter: 2016Q1

REPORT INFORMATION
  Report Type: Spontaneous
  Country: US (occurrence: None)
  Receive Date: 20160219
  Receipt Date: 20160219
  Transmission Date: 20160526
  Serious: No
  Sender: FDA-Public Use
  Company Number: None

PATIENT

DRUGS (2)
  1. GABLOFEN [Suspect]
     Active Substance: BACLOFEN
     Dosage: SYRINGE
  2. BACLOFEN PUMP [Suspect]
     Active Substance: BACLOFEN

REACTIONS (3)
  - Product label confusion [None]
  - Exposure to contaminated device [None]
  - Product sterility lacking [None]
